FAERS Safety Report 7679599-8 (Version None)
Quarter: 2011Q3

REPORT INFORMATION
  Report Type: 
  Country: None (occurrence: None)
  Receive Date: 20110809
  Receipt Date: 20110802
  Transmission Date: 20111222
  Serious: Yes (Other)
  Sender: FDA-Public Use
  Company Number: 2011S1000909

PATIENT
  Age: 57 Year
  Sex: Male
  Weight: 78 kg

DRUGS (10)
  1. MEXITIL [Concomitant]
  2. ZESTRIL [Concomitant]
  3. LOSARTAN POTASSIUM [Concomitant]
  4. SIGMART [Concomitant]
  5. ALOSITOL [Concomitant]
  6. LIVALO [Suspect]
     Indication: DYSLIPIDAEMIA
     Dosage: 1 MG;1X;PO ; 4 MG;1X;PO
     Route: 048
     Dates: start: 20110201, end: 20110516
  7. LIVALO [Suspect]
     Indication: DYSLIPIDAEMIA
     Dosage: 1 MG;1X;PO ; 4 MG;1X;PO
     Route: 048
     Dates: start: 20110517, end: 20110620
  8. ISOSORBIDE DINITRATE [Concomitant]
  9. ASPIRIN [Concomitant]
  10. PLAVIX [Concomitant]

REACTIONS (4)
  - WALKING AID USER [None]
  - TENDONITIS [None]
  - ALANINE AMINOTRANSFERASE INCREASED [None]
  - GAMMA-GLUTAMYLTRANSFERASE INCREASED [None]
